FAERS Safety Report 9078811 (Version 1)
Quarter: 2013Q1

REPORT INFORMATION
  Report Type: Spontaneous
  Country: US (occurrence: US)
  Receive Date: 20130130
  Receipt Date: 20130130
  Transmission Date: 20140127
  Serious: Yes (Death)
  Sender: FDA-Public Use
  Company Number: US-ROCHE-1174750

PATIENT
  Age: 49 Year
  Sex: Male
  Weight: 69.3 kg

DRUGS (3)
  1. AVASTIN [Suspect]
     Indication: NON-SMALL CELL LUNG CANCER
     Route: 042
     Dates: start: 20110920
  2. PEMETREXED [Concomitant]
     Indication: NON-SMALL CELL LUNG CANCER
     Route: 065
     Dates: start: 20110909
  3. FOLIC ACID [Concomitant]
     Route: 048
     Dates: start: 201109

REACTIONS (1)
  - Myocardial infarction [Fatal]
